FAERS Safety Report 13671387 (Version 1)
Quarter: 2017Q2

REPORT INFORMATION
  Report Type: Spontaneous
  Country: US (occurrence: US)
  Receive Date: 20170620
  Receipt Date: 20170620
  Transmission Date: 20170830
  Serious: No
  Sender: FDA-Public Use
  Company Number: US-ROCHE-1448221

PATIENT
  Sex: Female

DRUGS (1)
  1. XELODA [Suspect]
     Active Substance: CAPECITABINE
     Indication: COLON CANCER
     Dosage: 4 PILLS IN THE MORNING, 4 IN THE EVENING
     Route: 065
     Dates: start: 20140730, end: 20140806

REACTIONS (3)
  - Rash [Unknown]
  - Blister [Unknown]
  - Erythema [Unknown]
